FAERS Safety Report 5612212-X (Version None)
Quarter: 2008Q1

REPORT INFORMATION
  Report Type: 
  Country: None (occurrence: None)
  Receive Date: 20080204
  Receipt Date: 20080130
  Transmission Date: 20080703
  Serious: Yes (Other)
  Sender: FDA-Public Use
  Company Number: US-WYE-H02395608

PATIENT
  Age: 43 Year
  Sex: Female

DRUGS (1)
  1. PRIMATENE MIST [Suspect]
     Indication: DYSPNOEA
     Dosage: TWO PUFFS UP TO 10 TIMES A DAY
     Route: 055
     Dates: start: 20000101

REACTIONS (2)
  - DRUG DEPENDENCE [None]
  - OVERDOSE [None]
